FAERS Safety Report 9543775 (Version 2)
Quarter: 2013Q4

REPORT INFORMATION
  Report Type: Spontaneous
  Country: US (occurrence: US)
  Receive Date: 20130923
  Receipt Date: 20131024
  Transmission Date: 20140711
  Serious: Yes (Other)
  Sender: FDA-Public Use
  Company Number: US-BAYER-2013-114823

PATIENT
  Age: 34 Year
  Sex: Female
  Weight: 75.28 kg

DRUGS (3)
  1. MIRENA [Suspect]
     Indication: CONTRACEPTION
     Dosage: 20 MCG/24HR, CONT
     Route: 015
     Dates: start: 20130911, end: 20130919
  2. PRENATAL VITAMINS [Concomitant]
     Indication: BREAST FEEDING
     Dosage: UNK UNK, ONCE DAILY
     Dates: start: 20120828
  3. NEXIUM [Concomitant]
     Dosage: 20 MG, ONCE DAILY
     Dates: start: 20130520

REACTIONS (3)
  - Device dislocation [Recovered/Resolved]
  - Pain [Recovered/Resolved]
  - Medical device discomfort [Recovered/Resolved]
